FAERS Safety Report 16094687 (Version 4)
Quarter: 2019Q4

REPORT INFORMATION
  Report Type: Spontaneous
  Country: JP (occurrence: JP)
  Receive Date: 20190320
  Receipt Date: 20191003
  Transmission Date: 20200122
  Serious: Yes (Death, Hospitalization)
  Sender: FDA-Public Use
  Company Number: PHJP2019JP003025

PATIENT
  Age: 78 Year
  Sex: Male
  Weight: 50 kg

DRUGS (3)
  1. VOTRIENT [Suspect]
     Active Substance: PAZOPANIB HYDROCHLORIDE
     Indication: SOFT TISSUE SARCOMA
     Dosage: 400 MG, QD
     Route: 048
     Dates: start: 20190116, end: 20190207
  2. LIXIANA [Concomitant]
     Active Substance: EDOXABAN TOSYLATE
     Indication: ATRIAL FIBRILLATION
     Dosage: 30 MG, QD
     Route: 048
     Dates: start: 20180420, end: 20190212
  3. CALONAL [Concomitant]
     Active Substance: ACETAMINOPHEN
     Indication: PAIN
     Dosage: 500 MG, BID
     Route: 048
     Dates: start: 20180414, end: 20190212

REACTIONS (9)
  - Disseminated intravascular coagulation [Fatal]
  - Depressed level of consciousness [Fatal]
  - Palpitations [Not Recovered/Not Resolved]
  - Hepatic failure [Fatal]
  - Hepatic function abnormal [Fatal]
  - General physical health deterioration [Fatal]
  - Blood bilirubin increased [Fatal]
  - Malaise [Fatal]
  - Decreased appetite [Fatal]

NARRATIVE: CASE EVENT DATE: 20190125
